FAERS Safety Report 21343862 (Version 1)
Quarter: 2022Q3

REPORT INFORMATION
  Report Type: Spontaneous
  Country: US (occurrence: US)
  Receive Date: 20220916
  Receipt Date: 20220916
  Transmission Date: 20221027
  Serious: No
  Sender: FDA-Public Use
  Company Number: US-VERTEX PHARMACEUTICALS-2022-013446

PATIENT

DRUGS (2)
  1. TRIKAFTA [Suspect]
     Active Substance: ELEXACAFTOR\IVACAFTOR\TEZACAFTOR
     Indication: Cystic fibrosis
     Dosage: UNKNOWN
     Route: 048
  2. TRIKAFTA [Suspect]
     Active Substance: ELEXACAFTOR\IVACAFTOR\TEZACAFTOR
     Dosage: ALTERNATING 2 ORANGE TABS EVERY OTHER AM WITH 1 ORANGE TAB EVERY OTHER AM
     Route: 048

REACTIONS (2)
  - Aspartate aminotransferase increased [Recovering/Resolving]
  - Alanine aminotransferase increased [Recovering/Resolving]
